FAERS Safety Report 9461246 (Version 1)
Quarter: 2013Q3

REPORT INFORMATION
  Report Type: Spontaneous
  Country: US (occurrence: None)
  Receive Date: 20130814
  Receipt Date: 20130814
  Transmission Date: 20140515
  Serious: Yes (Disabling, Other)
  Sender: FDA-Public Use
  Company Number: None

PATIENT
  Age: 36 Year
  Sex: Female
  Weight: 97.98 kg

DRUGS (1)
  1. MIRENA [Suspect]
     Indication: CONTRACEPTION
     Dosage: 1 INSERTED
     Route: 015
     Dates: start: 20130703, end: 20130801

REACTIONS (8)
  - Dermatitis [None]
  - Urticaria [None]
  - Pruritus [None]
  - Alopecia [None]
  - Mood altered [None]
  - Irritability [None]
  - Abnormal behaviour [None]
  - Hypersensitivity [None]
